FAERS Safety Report 8072732-8 (Version None)
Quarter: 2012Q1

REPORT INFORMATION
  Report Type: 
  Country: None (occurrence: None)
  Receive Date: 20120126
  Receipt Date: 20120117
  Transmission Date: 20120608
  Serious: Yes (Other)
  Sender: FDA-Public Use
  Company Number: CHPA2012US001618

PATIENT
  Age: 51 Year
  Sex: Female

DRUGS (1)
  1. EXCEDRIN EXTRA STRENGTH TABLETS [Suspect]
     Indication: MIGRAINE
     Dosage: 2 DF, PRN
     Route: 048

REACTIONS (6)
  - GASTRITIS [None]
  - MALAISE [None]
  - DYSGEUSIA [None]
  - HIATUS HERNIA [None]
  - ASTHENIA [None]
  - NAUSEA [None]
